FAERS Safety Report 10962484 (Version 9)
Quarter: 2015Q4

REPORT INFORMATION
  Report Type: Spontaneous
  Country: US (occurrence: US)
  Receive Date: 20150327
  Receipt Date: 20151026
  Transmission Date: 20160304
  Serious: Yes (Hospitalization, Other)
  Sender: FDA-Public Use
  Company Number: US-GLAXOSMITHKLINE-US2015GSK039570

PATIENT
  Age: 28 Year
  Sex: Female

DRUGS (12)
  1. ORENITRAM [Concomitant]
     Active Substance: TREPROSTINIL
  2. CHLORAPREP [Suspect]
     Active Substance: CHLORHEXIDINE GLUCONATE\ISOPROPYL ALCOHOL
     Indication: PRODUCT USED FOR UNKNOWN INDICATION
     Dosage: UNK, U
     Route: 065
  3. REVATIO [Concomitant]
     Active Substance: SILDENAFIL CITRATE
  4. FLOLAN [Suspect]
     Active Substance: EPOPROSTENOL SODIUM
     Dosage: 39 NG/KG/MIN CONTINUOUSLY
     Route: 042
  5. ADEMPAS [Concomitant]
     Active Substance: RIOCIGUAT
  6. FLOLAN [Suspect]
     Active Substance: EPOPROSTENOL SODIUM
     Indication: PULMONARY ARTERIAL HYPERTENSION
     Dosage: 8 NG/KG/MIN CONTINUOUS
     Route: 042
     Dates: start: 20150319
  7. FLOLAN [Suspect]
     Active Substance: EPOPROSTENOL SODIUM
     Dosage: 40 NG/KG/MIN CONTINUOUSLY
     Route: 042
     Dates: start: 20150319
  8. TRACLEER [Concomitant]
     Active Substance: BOSENTAN
  9. OPSUMIT [Concomitant]
     Active Substance: MACITENTAN
  10. FLOLAN [Suspect]
     Active Substance: EPOPROSTENOL SODIUM
     Dosage: 17 NG/KG/MIN
     Route: 042
  11. FLOLAN [Suspect]
     Active Substance: EPOPROSTENOL SODIUM
     Dosage: 36 DF, CO
  12. FLOLAN [Suspect]
     Active Substance: EPOPROSTENOL SODIUM
     Dosage: 39 NG/KG/MIN CONTINUOUSLY
     Route: 042

REACTIONS (16)
  - Dyspnoea [Unknown]
  - Catheter site pain [Unknown]
  - Vomiting [Unknown]
  - Nausea [Unknown]
  - Hospitalisation [Recovered/Resolved]
  - Device malfunction [Unknown]
  - Medical device complication [Unknown]
  - Headache [Unknown]
  - Hip arthroplasty [Unknown]
  - Diarrhoea [Unknown]
  - Device related infection [Unknown]
  - Drug dose omission [Unknown]
  - Pain in jaw [Unknown]
  - Skin irritation [Unknown]
  - Feeling hot [Unknown]
  - Catheter site erythema [Unknown]

NARRATIVE: CASE EVENT DATE: 201510
